FAERS Safety Report 6255889-0 (Version None)
Quarter: 2009Q3

REPORT INFORMATION
  Report Type: 
  Country: None (occurrence: None)
  Receive Date: 20090703
  Receipt Date: 20090622
  Transmission Date: 20100115
  Serious: Yes (Other)
  Sender: FDA-Public Use
  Company Number: US-PFIZER INC-2009216831

PATIENT
  Sex: Male
  Weight: 81.7 kg

DRUGS (2)
  1. SUTENT [Suspect]
     Indication: METASTASES TO LUNG
     Dosage: UNK
     Route: 048
     Dates: start: 20090421
  2. SUTENT [Suspect]
     Indication: RENAL CELL CARCINOMA

REACTIONS (9)
  - AGEUSIA [None]
  - DRY SKIN [None]
  - GAIT DISTURBANCE [None]
  - PAIN IN EXTREMITY [None]
  - RASH [None]
  - SKIN EXFOLIATION [None]
  - SKIN NODULE [None]
  - STOMATITIS [None]
  - TENDERNESS [None]
